FAERS Safety Report 9164588 (Version 2)
Quarter: 2013Q4

REPORT INFORMATION
  Report Type: Report from Study
  Country: US (occurrence: US)
  Receive Date: 20130315
  Receipt Date: 20131211
  Transmission Date: 20140711
  Serious: No
  Sender: FDA-Public Use
  Company Number: PHEH2013US005931

PATIENT
  Sex: Female

DRUGS (15)
  1. TASIGNA [Suspect]
     Indication: CHRONIC MYELOID LEUKAEMIA
     Dosage: 2 DF, Q12H
     Route: 048
  2. DUONEB [Concomitant]
  3. LEVOTHYROXIN [Concomitant]
  4. SIMVASTATIN [Concomitant]
  5. LASIX [Concomitant]
  6. KLOR-CON [Concomitant]
  7. ZYRTEC [Concomitant]
  8. PEPCID [Concomitant]
  9. MULTI-VIT [Concomitant]
  10. CALCIUM CITRATE + D [Concomitant]
  11. OMEGA 3 [Concomitant]
  12. AMBIEN [Concomitant]
  13. L-LYSINE [Concomitant]
  14. SALINE [Concomitant]
  15. FOLIC ACID W/IRON [Concomitant]

REACTIONS (5)
  - Rash [Unknown]
  - Headache [Unknown]
  - Back pain [Unknown]
  - Pruritus [Unknown]
  - Alopecia [Unknown]
